FAERS Safety Report 4699643-X (Version None)
Quarter: 2005Q2

REPORT INFORMATION
  Report Type: 
  Country: None (occurrence: None)
  Receive Date: 20050623
  Receipt Date: 20050616
  Transmission Date: 20051028
  Serious: Yes (Death)
  Sender: FDA-Public Use
  Company Number: 200510258BCA

PATIENT
  Age: 45 Year
  Sex: Female
  Weight: 122 kg

DRUGS (18)
  1. AVELOX [Suspect]
     Indication: PNEUMONIA
     Dosage: 400 MG, TOTAL DAILY
     Dates: start: 20050422, end: 20050401
  2. VENTOLIN [Concomitant]
  3. ADVAIR DISKUS 100/50 [Concomitant]
  4. SPIRONOLACTONE [Concomitant]
  5. LEVOTHYROXINE [Concomitant]
  6. DIPHENYLHYDANTOIN [Concomitant]
  7. FUROSEMIDE [Concomitant]
  8. RAMIPRIL [Concomitant]
  9. GLYBURIDE [Concomitant]
  10. HYDROXYZINE [Concomitant]
  11. ALLOPURINOL [Concomitant]
  12. METFORMIN [Concomitant]
  13. METOLAZONE [Concomitant]
  14. NIFEDIPINE [Concomitant]
  15. CLONAZEPAM [Concomitant]
  16. ATROVENT [Concomitant]
  17. DILANTIN [Concomitant]
  18. TYLENOL [Concomitant]

REACTIONS (1)
  - ASPIRATION [None]
